FAERS Safety Report 13302748 (Version 2)
Quarter: 2017Q1

REPORT INFORMATION
  Report Type: Spontaneous
  Country: IT (occurrence: IT)
  Receive Date: 20170307
  Receipt Date: 20170310
  Transmission Date: 20170428
  Serious: Yes (Death, Hospitalization, Other)
  Sender: FDA-Public Use
  Company Number: IT-GILEAD-2017-0260805

PATIENT
  Sex: Male

DRUGS (2)
  1. RITUXIMAB [Suspect]
     Active Substance: RITUXIMAB
     Indication: LYMPHOCYTIC LYMPHOMA
     Dosage: UNK
     Route: 065
     Dates: start: 20161215
  2. IDELALISIB [Suspect]
     Active Substance: IDELALISIB
     Indication: LYMPHOCYTIC LYMPHOMA
     Dosage: UNK
     Route: 065
     Dates: start: 20161215

REACTIONS (3)
  - Respiratory disorder [Fatal]
  - Pneumonia [Fatal]
  - Haemoptysis [Fatal]

NARRATIVE: CASE EVENT DATE: 20170223
